FAERS Safety Report 21832144 (Version 1)
Quarter: 2023Q1

REPORT INFORMATION
  Report Type: Spontaneous
  Country: US (occurrence: None)
  Receive Date: 20230106
  Receipt Date: 20230106
  Transmission Date: 20230418
  Serious: Yes (Hospitalization)
  Sender: FDA-Public Use
  Company Number: None

PATIENT
  Age: 46 Year
  Sex: Male

DRUGS (3)
  1. CAPECITABINE [Suspect]
     Active Substance: CAPECITABINE
     Indication: Rectal cancer
  2. OXALIPLATIN [Suspect]
     Active Substance: OXALIPLATIN
  3. BEVACIZUMAB [Suspect]
     Active Substance: BEVACIZUMAB

REACTIONS (12)
  - Abdominal pain [None]
  - Dyspnoea [None]
  - Chest discomfort [None]
  - Tremor [None]
  - Hypertension [None]
  - Feeling hot [None]
  - Acute kidney injury [None]
  - Nephrotic syndrome [None]
  - Thrombocytopenia [None]
  - Haemolytic anaemia [None]
  - Hypersensitivity [None]
  - Haemodialysis [None]

NARRATIVE: CASE EVENT DATE: 20220902
